FAERS Safety Report 8715192 (Version 2)
Quarter: 2012Q4

REPORT INFORMATION
  Report Type: Report from Study
  Country: BE (occurrence: BE)
  Receive Date: 20120809
  Receipt Date: 20120920
  Transmission Date: 20130627
  Serious: Yes (Hospitalization)
  Sender: FDA-Public Use
  Company Number: BE-PFIZER INC-2012189247

PATIENT
  Age: 39 Year
  Sex: Female
  Weight: 77.5 kg

DRUGS (6)
  1. GENOTROPIN [Suspect]
     Indication: HYPOPITUITARISM
     Dosage: 1 mg, 7/WK
     Route: 058
     Dates: start: 20030319
  2. ESTROGEN NOS [Concomitant]
     Indication: LUTEINISING HORMONE DEFICIENCY
     Dosage: UNK
     Dates: start: 19990914
  3. ESTROGEN NOS [Concomitant]
     Indication: FOLLICLE-STIMULATING HORMONE DEFICIENCY
  4. CLIMEN (2E2+1CPA) [Concomitant]
     Indication: LUTEINISING HORMONE DEFICIENCY
     Dosage: UNK
     Dates: start: 19990914
  5. CLIMEN (2E2+1CPA) [Concomitant]
     Indication: FOLLICLE-STIMULATING HORMONE DEFICIENCY
  6. LEVOTHYROXINE [Concomitant]
     Indication: BLOOD THYROID STIMULATING HORMONE DECREASED
     Dosage: UNK
     Dates: start: 19970911

REACTIONS (1)
  - Pituitary tumour benign [Recovered/Resolved]
